FAERS Safety Report 25900467 (Version 3)
Quarter: 2025Q4

REPORT INFORMATION
  Report Type: Spontaneous
  Country: EU (occurrence: EU)
  Receive Date: 20251009
  Receipt Date: 20251103
  Transmission Date: 20260118
  Serious: Yes (Hospitalization, Other)
  Sender: SANDOZ
  Company Number: EU-AMGEN-CZESP2025190217

PATIENT
  Age: 57 Year
  Sex: Female

DRUGS (18)
  1. ADALIMUMAB [Suspect]
     Active Substance: ADALIMUMAB
     Indication: Pityriasis rubra pilaris
     Dosage: UNK, Q3MO
     Route: 058
  2. ACITRETIN [Suspect]
     Active Substance: ACITRETIN
     Indication: Pityriasis rubra pilaris
     Dosage: 25 MG, QD
     Route: 065
  3. ACITRETIN [Suspect]
     Active Substance: ACITRETIN
     Indication: Psoriasis
  4. IMURAN [Suspect]
     Active Substance: AZATHIOPRINE
     Indication: Pityriasis rubra pilaris
     Dosage: UNK
     Route: 065
  5. INFLIXIMAB [Suspect]
     Active Substance: INFLIXIMAB
     Indication: Pityriasis rubra pilaris
     Dosage: UNK
     Route: 065
  6. METHOTREXATE [Suspect]
     Active Substance: METHOTREXATE
     Indication: Pityriasis rubra pilaris
     Dosage: 10 MG, QW
     Route: 065
  7. RISANKIZUMAB [Suspect]
     Active Substance: RISANKIZUMAB
     Indication: Pityriasis rubra pilaris
     Dosage: UNK
     Route: 058
  8. ACITRETIN [Concomitant]
     Active Substance: ACITRETIN
     Indication: Dermatitis exfoliative generalised
     Dosage: 25 MILLIGRAM, QD (FOR 4 MONTHS)
     Route: 065
  9. ACITRETIN [Concomitant]
     Active Substance: ACITRETIN
     Indication: Skin exfoliation
     Dosage: 25 MILLIGRAM, QD (FOR 4 MONTHS)
     Route: 065
  10. AZATHIOPRINE [Concomitant]
     Active Substance: AZATHIOPRINE
     Indication: Dermatitis exfoliative generalised
     Dosage: 100 MILLIGRAM, QD (FOR 4 MONTHS)
     Route: 065
  11. AZATHIOPRINE [Concomitant]
     Active Substance: AZATHIOPRINE
     Indication: Skin exfoliation
     Dosage: 100 MILLIGRAM, QD (FOR 4 MONTHS)
     Route: 065
  12. CYCLOSPORINE [Concomitant]
     Active Substance: CYCLOSPORINE
     Indication: Pityriasis rubra pilaris
     Dosage: 150 MILLIGRAM, BID
     Route: 065
  13. CYCLOSPORINE [Concomitant]
     Active Substance: CYCLOSPORINE
     Dosage: 150 MILLIGRAM, BID
     Route: 065
  14. METHOTREXATE [Concomitant]
     Active Substance: METHOTREXATE
     Indication: Dermatitis exfoliative generalised
     Dosage: 10 MILLIGRAM, QWK (FOR 6 MONTHS)
     Route: 065
  15. METHOTREXATE [Concomitant]
     Active Substance: METHOTREXATE
     Indication: Skin exfoliation
     Dosage: 10 MILLIGRAM, QWK (FOR 6 MONTHS)
     Route: 065
  16. OMEPRAZOLE [Concomitant]
     Active Substance: OMEPRAZOLE
     Indication: Gastrooesophageal reflux disease
     Route: 065
  17. RISANKIZUMAB [Concomitant]
     Active Substance: RISANKIZUMAB
     Indication: Pityriasis rubra pilaris
     Dosage: UNK
     Route: 065
  18. RISANKIZUMAB [Concomitant]
     Active Substance: RISANKIZUMAB
     Dosage: UNK
     Route: 065

REACTIONS (10)
  - Pityriasis rubra pilaris [Recovering/Resolving]
  - Dermatopathic lymphadenopathy [Unknown]
  - Treatment failure [Unknown]
  - Pruritus [Recovered/Resolved]
  - Quality of life decreased [Recovering/Resolving]
  - Negative thoughts [Unknown]
  - Rash [Unknown]
  - Off label use [Unknown]
  - Drug ineffective for unapproved indication [Unknown]
  - Drug ineffective [Unknown]
